FAERS Safety Report 8095343-7 (Version None)
Quarter: 2012Q1

REPORT INFORMATION
  Report Type: 
  Country: None (occurrence: None)
  Receive Date: 20120125
  Receipt Date: 20120118
  Transmission Date: 20120608
  Serious: Yes (Hospitalization)
  Sender: FDA-Public Use
  Company Number: 2012SP003622

PATIENT
  Age: 23 Year
  Sex: Female

DRUGS (3)
  1. TRILEPTAL [Concomitant]
  2. PROZAC [Concomitant]
  3. SAPHRIS [Suspect]
     Indication: SCHIZOPHRENIA
     Dosage: 5;10;15 MG, QPM, SL
     Route: 060
     Dates: start: 20110101

REACTIONS (3)
  - SOMNOLENCE [None]
  - SCHIZOPHRENIA [None]
  - CONDITION AGGRAVATED [None]
